FAERS Safety Report 9437209 (Version 2)
Quarter: 2014Q1

REPORT INFORMATION
  Report Type: Report from Study
  Country: IT (occurrence: IT)
  Receive Date: 20130802
  Receipt Date: 20140227
  Transmission Date: 20141002
  Serious: Yes (Hospitalization)
  Sender: FDA-Public Use
  Company Number: PHHY2013IT081852

PATIENT
  Age: 44 Year
  Sex: Male

DRUGS (19)
  1. CERTICAN [Suspect]
     Indication: IMMUNOSUPPRESSION
     Dosage: 0.5 MG, UNK
     Route: 048
     Dates: start: 20070222
  2. DELTACORTENE [Concomitant]
     Dosage: 5 MG, UNK
  3. MYFORTIC [Concomitant]
     Dosage: 720 MG, UNK
  4. LASIX [Concomitant]
     Dosage: 500 MG, UNK
  5. LUVION [Concomitant]
     Dosage: 100 MG, UNK
  6. DILATREND [Concomitant]
     Dosage: 25 MG, UNK
  7. CORLENTOR [Concomitant]
     Dosage: 5 MG, UNK
  8. UNIPRIL [Concomitant]
     Dosage: 5 MG, UNK
  9. LANOXIN [Concomitant]
     Dosage: 1 DF, UNK
  10. PANTORC [Concomitant]
     Dosage: 40 MG, UNK
  11. ZYLORIC [Concomitant]
     Dosage: 300 MG, UNK
  12. ESKIM [Concomitant]
     Dosage: 100 MG, UNK
  13. LESCOL [Concomitant]
     Dosage: 40 MG, UNK
  14. CARDIOASPIRIN [Concomitant]
     Dosage: 100 MG, UNK
  15. COUMADIN//COUMARIN [Concomitant]
     Dosage: 5 MG, UNK
  16. NOVONORM [Concomitant]
     Dosage: 1 MG, UNK
  17. LANTUS [Concomitant]
     Dosage: 14 IU, UNK
     Route: 058
  18. NEORECORMON [Concomitant]
     Dosage: 4000 IU, UNK
  19. ZESTRIL [Concomitant]
     Dosage: 5 MG, UNK

REACTIONS (4)
  - Cardiac failure [Recovered/Resolved with Sequelae]
  - Complications of transplanted heart [Recovered/Resolved with Sequelae]
  - Ejection fraction decreased [Recovered/Resolved with Sequelae]
  - Renal failure acute [Recovered/Resolved with Sequelae]
